FAERS Safety Report 10827196 (Version 1)
Quarter: 2015Q1

REPORT INFORMATION
  Report Type: Report from Study
  Country: US (occurrence: US)
  Receive Date: 20150219
  Receipt Date: 20150219
  Transmission Date: 20150721
  Serious: No
  Sender: FDA-Public Use
  Company Number: US-ABBVIE-14K-163-1320013-00

PATIENT
  Sex: Male

DRUGS (1)
  1. HUMIRA [Suspect]
     Active Substance: ADALIMUMAB
     Indication: CROHN^S DISEASE
     Route: 065
     Dates: start: 201402

REACTIONS (8)
  - Arthritis [Recovered/Resolved]
  - Stomatitis [Recovered/Resolved]
  - Pain of skin [Not Recovered/Not Resolved]
  - Therapeutic response unexpected [Unknown]
  - Emotional disorder [Unknown]
  - Oesophageal ulcer [Recovered/Resolved]
  - Acne [Not Recovered/Not Resolved]
  - Stress [Unknown]

NARRATIVE: CASE EVENT DATE: 2014
